FAERS Safety Report 9491651 (Version 2)
Quarter: 2013Q1

REPORT INFORMATION
  Report Type: Not Available
  Country: US (occurrence: US)
  Receive Date: 20121219
  Receipt Date: 20121219
  Transmission Date: 20140127
  Serious: Yes (Hospitalization, Other)
  Sender: FDA-Public Use
  Company Number: US-LUNDBECK-DKLU1084667

PATIENT
  Age: 23 Year
  Sex: Male

DRUGS (2)
  1. ONFI [Suspect]
     Indication: PRODUCT USED FOR UNKNOWN INDICATION
  2. DEPAKOTE [Concomitant]
     Indication: PRODUCT USED FOR UNKNOWN INDICATION

REACTIONS (2)
  - White blood cell count decreased [Not Recovered/Not Resolved]
  - Platelet count decreased [Unknown]
